FAERS Safety Report 6060571-9 (Version None)
Quarter: 2009Q1

REPORT INFORMATION
  Report Type: 
  Country: None (occurrence: None)
  Receive Date: 20090130
  Receipt Date: 20090130
  Transmission Date: 20090719
  Serious: Yes (Disabling, Other)
  Sender: FDA-Public Use
  Company Number: None

PATIENT
  Age: 82 Year
  Sex: Female
  Weight: 63.5036 kg

DRUGS (1)
  1. LIPITOR [Suspect]
     Indication: BLOOD CHOLESTEROL INCREASED
     Dosage: 20 MG. DAILY

REACTIONS (10)
  - ARTHRALGIA [None]
  - BACK PAIN [None]
  - HAEMORRHAGE [None]
  - LOSS OF CONSCIOUSNESS [None]
  - MALAISE [None]
  - MUSCLE DISORDER [None]
  - MUSCLE STRAIN [None]
  - MUSCULAR WEAKNESS [None]
  - MYALGIA [None]
  - RASH [None]
